FAERS Safety Report 7986654-1 (Version None)
Quarter: 2011Q4

REPORT INFORMATION
  Report Type: 
  Country: None (occurrence: None)
  Receive Date: 20111216
  Receipt Date: 20110214
  Transmission Date: 20120403
  Serious: No
  Sender: FDA-Public Use
  Company Number: US-BRISTOL-MYERS SQUIBB COMPANY-15548423

PATIENT
  Age: 64 Year
  Sex: Female

DRUGS (6)
  1. ABILIFY [Suspect]
     Dosage: STARTED 5 DAYS AGO
     Dates: start: 20110201
  2. PROZAC [Concomitant]
  3. KLONOPIN [Concomitant]
  4. TRAZODONE HCL [Concomitant]
  5. AMBIEN [Concomitant]
  6. EFFEXOR [Concomitant]

REACTIONS (4)
  - ANXIETY [None]
  - AGITATION [None]
  - DIZZINESS [None]
  - NAUSEA [None]
